FAERS Safety Report 9797246 (Version 1)
Quarter: 2014Q1

REPORT INFORMATION
  Report Type: Spontaneous
  Country: US (occurrence: US)
  Receive Date: 20140106
  Receipt Date: 20140106
  Transmission Date: 20141002
  Serious: No
  Sender: FDA-Public Use
  Company Number: US-BIOGENIDEC-2014BI000208

PATIENT
  Age: 44 Year
  Sex: Male

DRUGS (4)
  1. AVONEX [Suspect]
     Indication: MULTIPLE SCLEROSIS
     Route: 030
     Dates: start: 20131116
  2. AVONEX [Suspect]
     Indication: MULTIPLE SCLEROSIS
     Route: 030
     Dates: start: 20131218
  3. AVONEX [Suspect]
     Indication: MULTIPLE SCLEROSIS
     Route: 030
     Dates: start: 20131220
  4. AVONEX [Suspect]
     Indication: MULTIPLE SCLEROSIS
     Route: 030
     Dates: start: 20131227

REACTIONS (6)
  - Underdose [Not Recovered/Not Resolved]
  - Extra dose administered [Recovered/Resolved]
  - Musculoskeletal disorder [Not Recovered/Not Resolved]
  - Diplopia [Recovered/Resolved]
  - Wrong technique in drug usage process [Unknown]
  - Muscular weakness [Not Recovered/Not Resolved]
